FAERS Safety Report 20099050 (Version 2)
Quarter: 2021Q4

REPORT INFORMATION
  Report Type: Report from Study
  Country: CA (occurrence: CA)
  Receive Date: 20211122
  Receipt Date: 20211129
  Transmission Date: 20220303
  Serious: Yes (Death, Hospitalization, Other)
  Sender: FDA-Public Use
  Company Number: CA-OTSUKA-2021_037868

PATIENT
  Age: 74 Year
  Sex: Male

DRUGS (1)
  1. CEDAZURIDINE\DECITABINE [Suspect]
     Active Substance: CEDAZURIDINE\DECITABINE
     Indication: Myelodysplastic syndrome
     Dosage: (35 MG DECITABINE AND 100 MG CEDAZURIDINE)
     Route: 065
     Dates: start: 20211028

REACTIONS (6)
  - Death [Fatal]
  - Transfusion related complication [Unknown]
  - Acute leukaemia [Not Recovered/Not Resolved]
  - Adverse drug reaction [Unknown]
  - Tongue fungal infection [Unknown]
  - Headache [Unknown]

NARRATIVE: CASE EVENT DATE: 20211029
